FAERS Safety Report 8789013 (Version 2)
Quarter: 2012Q4

REPORT INFORMATION
  Report Type: Report from Study
  Country: DE (occurrence: DE)
  Receive Date: 20120917
  Receipt Date: 20121005
  Transmission Date: 20130627
  Serious: Yes (Hospitalization)
  Sender: FDA-Public Use
  Company Number: DE-AMGEN-DEUCT2012057931

PATIENT
  Age: 57 Year
  Sex: Male

DRUGS (2)
  1. ETANERCEPT [Suspect]
     Indication: RHEUMATOID ARTHRITIS
     Dosage: 50 mg, UNK
     Dates: start: 200911
  2. LANTAREL [Suspect]
     Indication: RHEUMATOID ARTHRITIS
     Dosage: 10 mg, weekly
     Route: 048
     Dates: start: 200811

REACTIONS (2)
  - Pilonidal cyst [Recovered/Resolved]
  - Impaired healing [Recovered/Resolved]
